FAERS Safety Report 17455425 (Version 1)
Quarter: 2020Q1

REPORT INFORMATION
  Report Type: Spontaneous
  Country: FR (occurrence: FR)
  Receive Date: 20200225
  Receipt Date: 20200225
  Transmission Date: 20200409
  Serious: Yes (Other)
  Sender: FDA-Public Use
  Company Number: FR-AUROBINDO-AUR-APL-2020-009143

PATIENT
  Age: 78 Year
  Sex: Male

DRUGS (4)
  1. PARACETAMOL [Suspect]
     Active Substance: ACETAMINOPHEN
     Indication: PAIN
     Dosage: 1 GRAM, ONCE A DAY
     Route: 048
     Dates: start: 20191222, end: 20191224
  2. ANSATIPINE [Suspect]
     Active Substance: RIFABUTIN
     Indication: PNEUMONIA
     Dosage: 150 MILLIGRAM, ONCE A DAY
     Route: 048
     Dates: start: 20191022
  3. ESBRIET [Suspect]
     Active Substance: PIRFENIDONE
     Indication: PULMONARY FIBROSIS
     Dosage: 2400 MILLIGRAM, ONCE A DAY
     Route: 048
     Dates: start: 201707
  4. CLARITHROMYCINE EG [Suspect]
     Active Substance: CLARITHROMYCIN
     Indication: PNEUMONIA
     Dosage: 1000 MILLIGRAM, ONCE A DAY
     Route: 048
     Dates: start: 20191022

REACTIONS (2)
  - Transaminases increased [Recovered/Resolved with Sequelae]
  - Cholestasis [Unknown]

NARRATIVE: CASE EVENT DATE: 20191223
